FAERS Safety Report 5688951-1 (Version None)
Quarter: 2008Q1

REPORT INFORMATION
  Report Type: 
  Country: None (occurrence: None)
  Receive Date: 20080331
  Receipt Date: 20060214
  Transmission Date: 20080703
  Serious: Yes (Death)
  Sender: FDA-Public Use
  Company Number: GT-ROCHE-436680

PATIENT
  Age: 49 Year
  Sex: Female

DRUGS (3)
  1. XELODA [Suspect]
     Indication: BREAST CANCER
     Route: 048
     Dates: start: 20051027
  2. LANSOPRAZOLE [Concomitant]
     Indication: PROPHYLAXIS
     Route: 048
  3. ZOLEDRONIC ACID [Concomitant]

REACTIONS (1)
  - DEATH [None]
